FAERS Safety Report 21735342 (Version 2)
Quarter: 2023Q1

REPORT INFORMATION
  Report Type: Report from Study
  Country: US (occurrence: US)
  Receive Date: 20221215
  Receipt Date: 20230307
  Transmission Date: 20230418
  Serious: No
  Sender: FDA-Public Use
  Company Number: US-ABBVIE-4198809

PATIENT
  Age: 25 Year
  Sex: Female

DRUGS (2)
  1. HUMIRA [Suspect]
     Active Substance: ADALIMUMAB
     Indication: Hidradenitis
     Route: 058
  2. HUMIRA [Suspect]
     Active Substance: ADALIMUMAB

REACTIONS (3)
  - Cyst [Recovering/Resolving]
  - Hidradenitis [Recovered/Resolved]
  - Injection site oedema [Recovered/Resolved]

NARRATIVE: CASE EVENT DATE: 20230204
